FAERS Safety Report 9229219 (Version 1)
Quarter: 2013Q2

REPORT INFORMATION
  Report Type: Spontaneous
  Country: US (occurrence: US)
  Receive Date: 20130412
  Receipt Date: 20130412
  Transmission Date: 20140414
  Serious: Yes (Hospitalization, Other)
  Sender: FDA-Public Use
  Company Number: US-ASTELLAS-2012US009882

PATIENT
  Age: 60 Year
  Sex: Female

DRUGS (20)
  1. PROGRAF [Suspect]
     Indication: LUNG TRANSPLANT
     Dosage: 2 MG, BID
     Route: 048
     Dates: start: 20101010
  2. PROGRAF [Suspect]
     Dosage: 1 MG, BID
     Route: 065
  3. PROGRAF [Suspect]
     Dosage: 2 MG IN AM, 2.5 MG IN PM
     Route: 048
     Dates: start: 20120813
  4. IMURAN                             /00001501/ [Concomitant]
     Indication: LIVER TRANSPLANT
     Dosage: 75 MG, QHS
     Route: 048
     Dates: start: 20101010
  5. IMURAN                             /00001501/ [Concomitant]
     Dosage: 250 MG, QHS
  6. PREDNISONE [Concomitant]
     Indication: LIVER TRANSPLANT
     Dosage: 5 MG, UID/QD
     Route: 048
     Dates: start: 20101010
  7. BACTRIM [Concomitant]
     Indication: LIVER TRANSPLANT
     Dosage: 1 DF, MONDAY/THURSDAY
     Route: 065
     Dates: start: 20101010
  8. BACTRIM [Concomitant]
     Indication: PROPHYLAXIS
  9. FLUCONAZOLE [Concomitant]
     Indication: LIVER TRANSPLANT
     Dosage: 50 MG, UID/QD
     Route: 048
     Dates: start: 20101010
  10. FLUCONAZOLE [Concomitant]
     Indication: ANTIFUNGAL PROPHYLAXIS
  11. METFORMIN [Concomitant]
     Indication: HYPOGLYCAEMIA
     Dosage: 500 MG, UID/QD
     Route: 048
     Dates: start: 20101010
  12. PAROXETINE [Concomitant]
     Indication: ANXIETY
     Dosage: 20 MG, QHS
     Route: 065
  13. PAROXETINE [Concomitant]
     Indication: DEPRESSION
  14. MULTIVITAMIN                       /00097801/ [Concomitant]
     Indication: PRODUCT USED FOR UNKNOWN INDICATION
     Dosage: UNK
     Route: 065
  15. SIMVASTATIN [Concomitant]
     Indication: HYPERLIPIDAEMIA
     Dosage: 10 DF, QHS
     Route: 065
  16. ALPRAZOLAM [Concomitant]
     Indication: ANXIETY
     Dosage: 0.5 DF, PRN
     Route: 048
  17. ALPRAZOLAM [Concomitant]
     Indication: DEPRESSION
  18. OMEPRAZOLE [Concomitant]
     Indication: GASTROOESOPHAGEAL REFLUX DISEASE
     Dosage: 40 DF, BID
     Route: 065
  19. RANITIDINE [Concomitant]
     Indication: PRODUCT USED FOR UNKNOWN INDICATION
     Dosage: UNK
     Route: 065
  20. ZOFRAN                             /00955301/ [Concomitant]
     Indication: PRODUCT USED FOR UNKNOWN INDICATION
     Dosage: 4 MG, PRN
     Route: 065

REACTIONS (11)
  - Off label use [Unknown]
  - Pneumonia [Recovered/Resolved]
  - Transplant rejection [Unknown]
  - Renal failure acute [Recovering/Resolving]
  - Allergic respiratory disease [Recovered/Resolved]
  - Oral candidiasis [Unknown]
  - Cytomegalovirus viraemia [Unknown]
  - Viral infection [Recovered/Resolved]
  - Depression [Unknown]
  - Anxiety [Unknown]
  - Gastrooesophageal reflux disease [Unknown]
